FAERS Safety Report 10744875 (Version 1)
Quarter: 2015Q1

REPORT INFORMATION
  Report Type: Spontaneous
  Country: CA (occurrence: None)
  Receive Date: 20150126
  Receipt Date: 20150126
  Transmission Date: 20150721
  Serious: Yes (Other)
  Sender: FDA-Public Use
  Company Number: AMAG201500030

PATIENT
  Age: 42 Year
  Sex: Female

DRUGS (6)
  1. FERAHEME [Suspect]
     Active Substance: FERUMOXYTOL NON-STOICHIOMETRIC MAGNETITE
     Indication: IRON DEFICIENCY ANAEMIA
     Dosage: SINGLE
     Route: 042
  2. NEXIUM (ESOMEEPRAZOLE MAGNESIUM) [Concomitant]
  3. PRUCALOPRIDE SUCCINATE [Concomitant]
     Active Substance: PRUCALOPRIDE SUCCINATE
  4. BIOTIN [Concomitant]
     Active Substance: BIOTIN
  5. MULTIVITAMINS [Concomitant]
     Active Substance: VITAMINS
  6. OMEGA 3 (FISH OIL) [Concomitant]
     Active Substance: OMEGA-3 FATTY ACIDS

REACTIONS (1)
  - Amenorrhoea [None]
